FAERS Safety Report 9665006 (Version 1)
Quarter: 2013Q4

REPORT INFORMATION
  Report Type: Spontaneous
  Country: US (occurrence: US)
  Receive Date: 20131101
  Receipt Date: 20131101
  Transmission Date: 20140711
  Serious: Yes (Hospitalization)
  Sender: FDA-Public Use
  Company Number: US-B.I. PHARMACEUTICALS,INC./RIDGEFIELD-2013-BI-34801BP

PATIENT
  Sex: Female
  Weight: 96 kg

DRUGS (15)
  1. SPIRIVA [Suspect]
     Indication: CHRONIC OBSTRUCTIVE PULMONARY DISEASE
     Dosage: 18 MCG
     Route: 055
     Dates: start: 2008
  2. LOSARTAN [Concomitant]
     Indication: HYPERTENSION
     Dosage: 50 MG
     Route: 048
  3. DALIRESP [Concomitant]
     Indication: CHRONIC OBSTRUCTIVE PULMONARY DISEASE
     Route: 055
  4. ALLOPURINOL [Concomitant]
     Indication: GOUT
     Dosage: 100 MG
     Route: 048
  5. FUROSEMIDE [Concomitant]
     Indication: FLUID RETENTION
     Dosage: 40 MG
     Route: 048
  6. GLIPIZIDE [Concomitant]
     Indication: DIABETES MELLITUS
     Dosage: 40 MG
     Route: 048
  7. MELOXICAM [Concomitant]
     Indication: CHRONIC OBSTRUCTIVE PULMONARY DISEASE
     Dosage: 15 MG
     Route: 048
  8. OMEPRAZOLE [Concomitant]
     Indication: ABDOMINAL DISCOMFORT
     Dosage: 40 MG
     Route: 048
  9. CARBAMAZEPINE [Concomitant]
     Indication: CONVULSION
     Dosage: 300 MG
     Route: 048
  10. CARBIDOPA/LEVODOPA [Concomitant]
     Indication: NEURALGIA
     Dosage: STRENGTH: 10/100; DAILY DOSE: 10/100
     Route: 048
  11. KCL [Concomitant]
     Indication: ELECTROLYTE SUBSTITUTION THERAPY
     Route: 048
  12. BABY ASPIRIN [Concomitant]
     Dosage: 81 MG
     Route: 048
  13. HUMALOG [Concomitant]
     Indication: DIABETES MELLITUS MANAGEMENT
     Dosage: (SUBCUTANEOUS)
     Route: 058
  14. PERCOCET [Concomitant]
     Indication: PAIN
     Dosage: STRENGTH: 1 TABLET;
     Route: 048
  15. PREDNISONE [Concomitant]
     Indication: CHRONIC OBSTRUCTIVE PULMONARY DISEASE
     Dosage: 10 MG
     Route: 048

REACTIONS (7)
  - Chronic obstructive pulmonary disease [Recovered/Resolved]
  - Blood pressure increased [Recovered/Resolved]
  - Blood glucose increased [Recovered/Resolved]
  - Weight decreased [Not Recovered/Not Resolved]
  - Blood count abnormal [Not Recovered/Not Resolved]
  - Fatigue [Not Recovered/Not Resolved]
  - Vitamin D decreased [Not Recovered/Not Resolved]
